FAERS Safety Report 5557624-8 (Version None)
Quarter: 2007Q4

REPORT INFORMATION
  Report Type: 
  Country: None (occurrence: None)
  Receive Date: 20071214
  Receipt Date: 20071206
  Transmission Date: 20080405
  Serious: Yes (Hospitalization)
  Sender: FDA-Public Use
  Company Number: B0498485A

PATIENT
  Age: 55 Year
  Sex: Female
  Weight: 68 kg

DRUGS (8)
  1. ARIXTRA [Suspect]
     Dosage: 2.5MG PER DAY
     Route: 058
     Dates: start: 20070525, end: 20070529
  2. ARIXTRA [Suspect]
     Indication: DEEP VEIN THROMBOSIS
     Dosage: 7.5MG PER DAY
     Route: 058
     Dates: start: 20070530, end: 20070603
  3. ZESTORETIC [Concomitant]
     Dosage: 1UNIT PER DAY
     Route: 048
  4. SPECIAFOLDINE [Concomitant]
     Dosage: 2UNIT PER DAY
     Route: 048
  5. NEXEN [Concomitant]
     Dosage: 2UNIT PER DAY
     Route: 048
     Dates: start: 20070527
  6. TARDYFERON [Concomitant]
     Dosage: 2UNIT PER DAY
     Route: 048
     Dates: start: 20070526
  7. MORPHINE [Concomitant]
     Route: 058
     Dates: start: 20070527
  8. PERFALGAN [Concomitant]
     Dosage: 1G FOUR TIMES PER DAY
     Route: 065
     Dates: start: 20070527, end: 20070528

REACTIONS (4)
  - ACTIVATED PARTIAL THROMBOPLASTIN TIME PROLONGED [None]
  - BLOOD FIBRINOGEN INCREASED [None]
  - DEEP VEIN THROMBOSIS [None]
  - HAEMATOMA [None]
